FAERS Safety Report 13571441 (Version 1)
Quarter: 2017Q2

REPORT INFORMATION
  Report Type: Spontaneous
  Country: US (occurrence: US)
  Receive Date: 20170523
  Receipt Date: 20170523
  Transmission Date: 20170830
  Serious: No
  Sender: FDA-Public Use
  Company Number: US-PFIZER INC-2017219853

PATIENT
  Sex: Male

DRUGS (1)
  1. XELJANZ XR [Suspect]
     Active Substance: TOFACITINIB CITRATE
     Dosage: 11 MG, UNK

REACTIONS (15)
  - Musculoskeletal stiffness [Unknown]
  - Joint range of motion decreased [Unknown]
  - Bone disorder [Unknown]
  - Patellofemoral pain syndrome [Unknown]
  - Drug ineffective [Unknown]
  - Back pain [Unknown]
  - Hypoaesthesia [Unknown]
  - Fall [Unknown]
  - Asthenia [Unknown]
  - Paraesthesia [Unknown]
  - Crepitations [Unknown]
  - Arthralgia [Unknown]
  - Rash [Recovering/Resolving]
  - Fatigue [Unknown]
  - Myalgia [Unknown]
